FAERS Safety Report 13523156 (Version 3)
Quarter: 2017Q3

REPORT INFORMATION
  Report Type: Spontaneous
  Country: US (occurrence: US)
  Receive Date: 20170508
  Receipt Date: 20170811
  Transmission Date: 20171127
  Serious: Yes (Death)
  Sender: FDA-Public Use
  Company Number: US-PFIZER INC-2017198658

PATIENT
  Age: 50 Year
  Sex: Male
  Weight: 62 kg

DRUGS (1)
  1. CAMPTOSAR [Suspect]
     Active Substance: IRINOTECAN HYDROCHLORIDE
     Dosage: 300 MG, UNK
     Dates: start: 20160309

REACTIONS (2)
  - General physical health deterioration [Unknown]
  - Death [Fatal]
